FAERS Safety Report 6305403-6 (Version None)
Quarter: 2009Q3

REPORT INFORMATION
  Report Type: 
  Country: None (occurrence: None)
  Receive Date: 20090811
  Receipt Date: 20090728
  Transmission Date: 20100115
  Serious: Yes (Other)
  Sender: FDA-Public Use
  Company Number: FR-GENENTECH-288339

PATIENT
  Age: 40 Year
  Sex: Female

DRUGS (1)
  1. XOLAIR [Suspect]
     Indication: DRUG USE FOR UNKNOWN INDICATION
     Dosage: 1 UNK, Q15D
     Dates: start: 20080101

REACTIONS (1)
  - LICHENOID KERATOSIS [None]
